FAERS Safety Report 7957010-7 (Version None)
Quarter: 2011Q4

REPORT INFORMATION
  Report Type: 
  Country: None (occurrence: None)
  Receive Date: 20111205
  Receipt Date: 20111205
  Transmission Date: 20120403
  Serious: Yes (Life-Threatening, Other)
  Sender: FDA-Public Use
  Company Number: None

PATIENT
  Age: 66 Year
  Sex: Male
  Weight: 80.739 kg

DRUGS (1)
  1. LOVAZA [Suspect]
     Indication: BLOOD TRIGLYCERIDES ABNORMAL
     Dosage: TWO CAPSULES
     Route: 048
     Dates: start: 20110520, end: 20111231

REACTIONS (1)
  - DRUG DISPENSING ERROR [None]
